FAERS Safety Report 25827757 (Version 1)
Quarter: 2025Q3

REPORT INFORMATION
  Report Type: Spontaneous
  Country: EU (occurrence: EU)
  Receive Date: 20250921
  Receipt Date: 20250921
  Transmission Date: 20251021
  Serious: Yes (Death)
  Sender: TEVA
  Company Number: EU-TEVA-VS-3373682

PATIENT
  Age: 19 Year
  Sex: Female

DRUGS (5)
  1. QUETIAPINE [Suspect]
     Active Substance: QUETIAPINE
     Indication: Product used for unknown indication
     Route: 065
  2. SODIUM NITRITE [Suspect]
     Active Substance: SODIUM NITRITE
     Indication: Product used for unknown indication
     Route: 065
  3. ALCOHOL [Suspect]
     Active Substance: ALCOHOL
     Indication: Product used for unknown indication
     Route: 065
  4. AMPHETAMINE [Suspect]
     Active Substance: AMPHETAMINE
     Indication: Product used for unknown indication
     Route: 065
  5. ATROPINE [Suspect]
     Active Substance: ATROPINE
     Indication: Product used for unknown indication
     Route: 065

REACTIONS (5)
  - Brain oedema [Fatal]
  - Methaemoglobinaemia [Fatal]
  - Hypoxia [Fatal]
  - Toxicity to various agents [Fatal]
  - Alcohol poisoning [Fatal]
